FAERS Safety Report 12324935 (Version 1)
Quarter: 2016Q2

REPORT INFORMATION
  Report Type: Spontaneous
  Country: US (occurrence: US)
  Receive Date: 20160502
  Receipt Date: 20160502
  Transmission Date: 20160815
  Serious: Yes (Other)
  Sender: FDA-Public Use
  Company Number: US-SA-2016SA085602

PATIENT

DRUGS (1)
  1. AMBIEN CR [Suspect]
     Active Substance: ZOLPIDEM TARTRATE
     Dosage: START DATE-NEARLY 13 YEARS
     Route: 065

REACTIONS (4)
  - Product use issue [Unknown]
  - Drug dependence [Unknown]
  - Off label use [Unknown]
  - Seizure [Unknown]
